FAERS Safety Report 19629797 (Version 4)
Quarter: 2021Q3

REPORT INFORMATION
  Report Type: Spontaneous
  Country: US (occurrence: US)
  Receive Date: 20210729
  Receipt Date: 20210920
  Transmission Date: 20211014
  Serious: Yes (Other)
  Sender: FDA-Public Use
  Company Number: US-BIOGEN-2021BI01032314

PATIENT
  Sex: Female

DRUGS (2)
  1. ADUHELM [Suspect]
     Active Substance: ADUCANUMAB-AVWA
     Indication: DEMENTIA ALZHEIMER^S TYPE
     Route: 065
     Dates: end: 201903
  2. ADUHELM [Suspect]
     Active Substance: ADUCANUMAB-AVWA
     Dosage: 3 MG
     Route: 042
     Dates: start: 201909, end: 201910

REACTIONS (2)
  - Seizure [Recovered/Resolved]
  - Cognitive disorder [Not Recovered/Not Resolved]
